FAERS Safety Report 10077769 (Version 3)
Quarter: 2014Q2

REPORT INFORMATION
  Report Type: Spontaneous
  Country: US (occurrence: US)
  Receive Date: 20140414
  Receipt Date: 20140507
  Transmission Date: 20141212
  Serious: Yes (Hospitalization, Other)
  Sender: FDA-Public Use
  Company Number: US-RB-065989-14

PATIENT
  Age: 42 Year
  Sex: Female

DRUGS (3)
  1. SUBOXONE TABLET [Suspect]
     Indication: DRUG DEPENDENCE
     Route: 060
     Dates: start: 2009
  2. BUPRENORPHINE/NALOXONE GENERIC [Suspect]
     Indication: DRUG DEPENDENCE
     Dosage: CUTTING THE TABLET; SHE TOOK FIRST 24 MG DAILY AND THEN 20 MG DAILY
     Route: 060
     Dates: end: 201404
  3. PAIN MEDICATIONS [Suspect]
     Indication: PROCEDURAL PAIN
     Dosage: DOSING DETAILS UNKNOWN
     Route: 065
     Dates: start: 201404

REACTIONS (7)
  - Colon cancer [Recovered/Resolved]
  - Procedural pain [Unknown]
  - Osteoarthritis [Recovered/Resolved]
  - Arthralgia [Unknown]
  - Condition aggravated [Unknown]
  - Drug withdrawal syndrome [Recovered/Resolved]
  - Wrong technique in drug usage process [Recovered/Resolved]
